FAERS Safety Report 16422406 (Version 1)
Quarter: 2019Q2

REPORT INFORMATION
  Report Type: Spontaneous
  Country: FR (occurrence: FR)
  Receive Date: 20190612
  Receipt Date: 20190612
  Transmission Date: 20190711
  Serious: Yes (Death, Hospitalization, Other)
  Sender: FDA-Public Use
  Company Number: FR-PFIZER INC-2019250940

PATIENT
  Age: 66 Year
  Sex: Male
  Weight: 79 kg

DRUGS (10)
  1. AUGMENTIN [Suspect]
     Active Substance: AMOXICILLIN\CLAVULANATE POTASSIUM
     Dosage: UNK
  2. NOREPINEPHRINE BITARTRATE. [Suspect]
     Active Substance: NOREPINEPHRINE BITARTRATE
     Dosage: UNK
  3. CERTICAN [Concomitant]
     Active Substance: EVEROLIMUS
     Dosage: 2 G, 1X/DAY: 1 G, BID
     Dates: start: 20181231
  4. EUPRESSYL [URAPIDIL] [Concomitant]
     Active Substance: URAPIDIL
     Dosage: 120 MG, 1X/DAY: 60 MG, BID
  5. DIFFU K [Concomitant]
     Active Substance: POTASSIUM CHLORIDE
     Dosage: 9 DF, 1X/DAY: 3 DF, TID
  6. PROGRAF [Concomitant]
     Active Substance: TACROLIMUS\TACROLIMUS ANHYDROUS
     Indication: PROPHYLAXIS AGAINST TRANSPLANT REJECTION
     Dosage: 1 MG, 1X/DAY: 0.5 MG, BID
     Dates: start: 20181231
  7. AMOXICILLIN CLAVULANIC ACID ZENTIVA [Suspect]
     Active Substance: AMOXICILLIN\CLAVULANIC ACID
     Indication: ERYSIPELAS
     Dosage: 4 DF, 1X/DAY: 2 DF, BID
     Route: 048
     Dates: start: 20181114, end: 20181124
  8. ESIDREX [Concomitant]
     Active Substance: HYDROCHLOROTHIAZIDE
     Dosage: 12.5 MG, QD
  9. FUROSEMIDE. [Concomitant]
     Active Substance: FUROSEMIDE
     Dosage: 3 DF, 1X/DAY: 1 DF, TID
  10. LOXEN L P [Concomitant]
     Active Substance: NICARDIPINE HYDROCHLORIDE
     Dosage: 1 DF, QD

REACTIONS (26)
  - Ascites [Unknown]
  - Pancytopenia [Recovered/Resolved]
  - Portal fibrosis [Unknown]
  - Jaundice [Unknown]
  - Diarrhoea [Unknown]
  - Oedema peripheral [Unknown]
  - Drug-induced liver injury [Fatal]
  - Clostridium difficile infection [Unknown]
  - Aortic bruit [Unknown]
  - Hepatotoxicity [Fatal]
  - Breath sounds abnormal [Unknown]
  - Haemodynamic instability [Unknown]
  - Polyuria [Unknown]
  - Pneumonitis [Unknown]
  - Biliary tract disorder [Unknown]
  - Cholangitis [Unknown]
  - Septic shock [Fatal]
  - Renal tubular necrosis [Unknown]
  - Encephalopathy [Recovered/Resolved]
  - Hepatic lesion [Unknown]
  - General physical health deterioration [Unknown]
  - Condition aggravated [Fatal]
  - Anuria [Unknown]
  - Acute kidney injury [Unknown]
  - Jaundice cholestatic [Unknown]
  - Hypothermia [Unknown]

NARRATIVE: CASE EVENT DATE: 2018
